FAERS Safety Report 4645614-9 (Version None)
Quarter: 2005Q2

REPORT INFORMATION
  Report Type: 
  Country: None (occurrence: None)
  Receive Date: 20050331
  Receipt Date: 20041208
  Transmission Date: 20051028
  Serious: No
  Sender: FDA-Public Use
  Company Number: 04P-163-0283151

PATIENT
  Age: 51 Year
  Sex: Female
  Weight: 64.8644 kg

DRUGS (4)
  1. HUMIRA [Suspect]
     Indication: RHEUMATOID ARTHRITIS
     Dosage: 40 MG, ONCE, SUBCUTANEOUS
     Route: 058
     Dates: start: 20041202, end: 20041203
  2. PREDNISONE [Concomitant]
  3. CALCIUM GLUCONATE [Concomitant]
  4. MULTI-VITAMINS [Concomitant]

REACTIONS (1)
  - RASH [None]
